FAERS Safety Report 19937485 (Version 2)
Quarter: 2021Q4

REPORT INFORMATION
  Report Type: Spontaneous
  Country: US (occurrence: US)
  Receive Date: 20211011
  Receipt Date: 20211020
  Transmission Date: 20220303
  Serious: No
  Sender: FDA-Public Use
  Company Number: US-JNJFOC-20210945173

PATIENT
  Sex: Female
  Weight: 49.49 kg

DRUGS (1)
  1. REMICADE [Suspect]
     Active Substance: INFLIXIMAB
     Indication: Rheumatoid arthritis
     Route: 042

REACTIONS (4)
  - Hot flush [Unknown]
  - Antibody test positive [Unknown]
  - Drug ineffective [Unknown]
  - Diarrhoea [Unknown]
